FAERS Safety Report 4636664-7 (Version None)
Quarter: 2005Q2

REPORT INFORMATION
  Report Type: 
  Country: None (occurrence: None)
  Receive Date: 20050414
  Receipt Date: 20050401
  Transmission Date: 20051028
  Serious: Yes (Life-Threatening, Hospitalization)
  Sender: FDA-Public Use
  Company Number: NO-2005-004874

PATIENT
  Age: 17 Year
  Sex: Female

DRUGS (1)
  1. YASMIN [Suspect]
     Indication: ORAL CONTRACEPTION
     Dosage: 1 TAB (S), 1X/21DAYS, ORAL
     Route: 048
     Dates: start: 20020301, end: 20020601

REACTIONS (4)
  - ANXIETY [None]
  - COMA [None]
  - PULMONARY EMBOLISM [None]
  - SYNCOPE [None]
